FAERS Safety Report 5961342-1 (Version None)
Quarter: 2008Q4

REPORT INFORMATION
  Report Type: 
  Country: None (occurrence: None)
  Receive Date: 20081114
  Receipt Date: 20080227
  Transmission Date: 20090506
  Serious: Yes (Other)
  Sender: FDA-Public Use
  Company Number: US-WYE-H02859808

PATIENT
  Age: 44 Year
  Sex: Female

DRUGS (5)
  1. CENTRUM CARDIO (MULTIVITAMIN/MULTIMINERAL/PHYTOSTEROLS, TABLET) [Suspect]
     Indication: NUTRITIONAL SUPPORT
     Dosage: 1 TABLET 2X PER 1 DAY, ORAL
     Route: 048
     Dates: start: 20080201, end: 20080201
  2. ADVIL COLD AND SINUS [Suspect]
     Indication: NASOPHARYNGITIS
     Dosage: 1 CAPLET ONCE, ORAL
     Route: 048
     Dates: start: 20080201, end: 20080201
  3. SYNTHROID [Concomitant]
  4. SINGULAIR [Concomitant]
  5. FEXOFENADINE HCL [Concomitant]

REACTIONS (2)
  - IRRITABILITY [None]
  - PALPITATIONS [None]
